FAERS Safety Report 13636519 (Version 3)
Quarter: 2024Q2

REPORT INFORMATION
  Report Type: Spontaneous
  Country: TR (occurrence: TR)
  Receive Date: 20170609
  Receipt Date: 20240413
  Transmission Date: 20240716
  Serious: Yes (Death, Life-Threatening, Hospitalization, Other)
  Sender: FDA-Public Use
  Company Number: None

PATIENT
  Age: 54 Year
  Sex: Male

DRUGS (16)
  1. TACROLIMUS [Suspect]
     Active Substance: TACROLIMUS
     Indication: Allogenic stem cell transplantation
     Dosage: UNK
     Route: 065
  2. TACROLIMUS [Suspect]
     Active Substance: TACROLIMUS
     Indication: Immunosuppressant drug therapy
     Dosage: UNK
     Route: 065
  3. TACROLIMUS [Suspect]
     Active Substance: TACROLIMUS
     Dosage: UNK
     Route: 065
  4. MYCOPHENOLATE MOFETIL [Suspect]
     Active Substance: MYCOPHENOLATE MOFETIL
     Indication: Allogenic stem cell transplantation
     Dosage: 2 GRAM, QD
     Route: 065
  5. MYCOPHENOLATE MOFETIL [Suspect]
     Active Substance: MYCOPHENOLATE MOFETIL
     Indication: Immunosuppressant drug therapy
     Dosage: UNK
     Route: 065
  6. PREDNISOLONE [Suspect]
     Active Substance: PREDNISOLONE
     Indication: Immunosuppressant drug therapy
     Dosage: UNK
     Route: 065
  7. PREDNISOLONE [Suspect]
     Active Substance: PREDNISOLONE
     Indication: Allogenic stem cell transplantation
     Dosage: 20 MILLIGRAM, QD
     Route: 065
  8. PREDNISOLONE [Suspect]
     Active Substance: PREDNISOLONE
     Dosage: UNK
     Route: 065
  9. PREDNISOLONE [Suspect]
     Active Substance: PREDNISOLONE
     Dosage: 5 MILLIGRAM, QD
     Route: 065
  10. THYMOCYTE IMMUNE GLOBULIN NOS [Suspect]
     Active Substance: THYMOCYTE IMMUNE GLOBULIN NOS
     Indication: Allogenic stem cell transplantation
     Dosage: UNK
     Route: 065
  11. THYMOCYTE IMMUNE GLOBULIN NOS [Suspect]
     Active Substance: THYMOCYTE IMMUNE GLOBULIN NOS
     Indication: Immunosuppressant drug therapy
  12. NYSTATIN [Concomitant]
     Active Substance: NYSTATIN
     Indication: Antifungal prophylaxis
     Dosage: UNK
     Route: 048
  13. VALACYCLOVIR HYDROCHLORIDE [Concomitant]
     Active Substance: VALACYCLOVIR HYDROCHLORIDE
     Indication: Antiviral prophylaxis
     Dosage: UNK
     Route: 048
  14. RAPAMYCIN [Concomitant]
     Active Substance: SIROLIMUS
     Indication: Product used for unknown indication
     Dosage: UNK
     Route: 065
  15. PYRIMETHAMINE\SULFADOXINE [Concomitant]
     Active Substance: PYRIMETHAMINE\SULFADOXINE
     Indication: Antifungal prophylaxis
     Dosage: UNK
     Route: 065
  16. PYRIMETHAMINE\SULFADOXINE [Concomitant]
     Active Substance: PYRIMETHAMINE\SULFADOXINE
     Indication: Prophylaxis

REACTIONS (8)
  - Non-Hodgkin^s lymphoma [Fatal]
  - Post transplant lymphoproliferative disorder [Fatal]
  - Cough [Unknown]
  - Ataxia [Unknown]
  - Ulcer [Unknown]
  - Skin lesion [Unknown]
  - Aspergillus infection [Fatal]
  - Off label use [Unknown]
